FAERS Safety Report 17540662 (Version 3)
Quarter: 2020Q2

REPORT INFORMATION
  Report Type: Report from Study
  Country: CO (occurrence: CO)
  Receive Date: 20200313
  Receipt Date: 20200608
  Transmission Date: 20200713
  Serious: Yes (Hospitalization, Other)
  Sender: FDA-Public Use
  Company Number: NVSC2020CO040711

PATIENT
  Sex: Female
  Weight: 61 kg

DRUGS (1)
  1. SANDOSTATIN LAR DEPOT [Suspect]
     Active Substance: OCTREOTIDE ACETATE
     Indication: ACROMEGALY
     Dosage: 20 MG, QMO
     Route: 030
     Dates: start: 2013

REACTIONS (8)
  - Anxiety [Unknown]
  - Hormone level abnormal [Unknown]
  - Dizziness [Unknown]
  - General physical health deterioration [Unknown]
  - Fungal infection [Unknown]
  - Weight increased [Unknown]
  - Chronic sinusitis [Unknown]
  - Headache [Unknown]
